FAERS Safety Report 6196431-2 (Version None)
Quarter: 2009Q2

REPORT INFORMATION
  Report Type: 
  Country: None (occurrence: None)
  Receive Date: 20090518
  Receipt Date: 20090518
  Transmission Date: 20091009
  Serious: Yes (Hospitalization)
  Sender: FDA-Public Use
  Company Number: None

PATIENT
  Age: 72 Year
  Sex: Male
  Weight: 128 kg

DRUGS (41)
  1. ERLOTINIB [Suspect]
  2. VIT B12 [Concomitant]
  3. COMPAZINE [Concomitant]
  4. ATIVAN [Concomitant]
  5. COUMADIN [Concomitant]
  6. CEFUROXIME [Concomitant]
  7. DOXYCYCLINE [Concomitant]
  8. ASPIRIN [Concomitant]
  9. PREVACID [Concomitant]
  10. NASONEX [Concomitant]
  11. NAPROSYN [Concomitant]
  12. K-DUR [Concomitant]
  13. DIGOXIN [Concomitant]
  14. THEOPHYLLINE [Concomitant]
  15. ACCOLADE [Concomitant]
  16. ATACAND [Concomitant]
  17. CLARINES [Concomitant]
  18. LASIC [Concomitant]
  19. SYNTHROID [Concomitant]
  20. LIPITORQ [Concomitant]
  21. DILTIAZEM [Concomitant]
  22. PROVENTIL [Concomitant]
  23. PULMICORT-100 [Concomitant]
  24. ALBUTEROL [Concomitant]
  25. LEVAQUIN [Concomitant]
  26. TRAMADOL HCL [Concomitant]
  27. LEVAQUIN [Concomitant]
  28. FENTANYL [Concomitant]
  29. SCOPOLAMINE [Concomitant]
  30. LORAZEPAM [Concomitant]
  31. SODIUM BICARB [Concomitant]
  32. COSYTROPIN [Concomitant]
  33. HYDROCORTISONE [Concomitant]
  34. NEXIUM [Concomitant]
  35. PEPCID [Concomitant]
  36. VITAMIN K TAB [Concomitant]
  37. VANCOMYCIN HCL [Concomitant]
  38. MAXIPIME [Concomitant]
  39. ALBUTEROL [Concomitant]
  40. VASOPRESSIN [Concomitant]
  41. LEVOPHED [Concomitant]

REACTIONS (6)
  - BLOOD ALBUMIN DECREASED [None]
  - DECREASED APPETITE [None]
  - DIARRHOEA [None]
  - DYSPNOEA [None]
  - INTERNATIONAL NORMALISED RATIO INCREASED [None]
  - JAUNDICE CHOLESTATIC [None]
